FAERS Safety Report 10209837 (Version 2)
Quarter: 2014Q2

REPORT INFORMATION
  Report Type: Spontaneous
  Country: FR (occurrence: FR)
  Receive Date: 20140602
  Receipt Date: 20140602
  Transmission Date: 20141212
  Serious: Yes (Hospitalization, Other)
  Sender: FDA-Public Use
  Company Number: US-ASTRAZENECA-2014SE38337

PATIENT
  Age: 65 Year
  Sex: Male

DRUGS (9)
  1. ATENOLOL [Suspect]
     Indication: PRODUCT USED FOR UNKNOWN INDICATION
     Route: 065
     Dates: start: 1994
  2. COKENZEN [Suspect]
     Indication: PRODUCT USED FOR UNKNOWN INDICATION
     Route: 065
  3. VELCADE [Suspect]
     Indication: PLASMA CELL MYELOMA
     Route: 058
     Dates: start: 20140310, end: 20140320
  4. CYCLOPHOSPHAMIDE [Suspect]
     Indication: PLASMA CELL MYELOMA
     Route: 048
     Dates: start: 20140310, end: 20140324
  5. DEXAMETHASONE [Suspect]
     Indication: PLASMA CELL MYELOMA
     Route: 048
     Dates: start: 20140310, end: 20140321
  6. MONICOR [Concomitant]
  7. INEGY [Concomitant]
  8. OMEPRAZOLE [Concomitant]
  9. LEVOTHYROXINE [Concomitant]

REACTIONS (2)
  - Renal failure [Recovered/Resolved]
  - Orthostatic hypotension [Recovered/Resolved]
